FAERS Safety Report 17830712 (Version 2)
Quarter: 2021Q3

REPORT INFORMATION
  Report Type: Report from Study
  Country: CA (occurrence: CA)
  Receive Date: 20200527
  Receipt Date: 20210705
  Transmission Date: 20211014
  Serious: Yes (Disabling)
  Sender: FDA-Public Use
  Company Number: CA-JNJFOC-20200520160

PATIENT
  Age: 6 Decade
  Sex: Male
  Weight: 88 kg

DRUGS (1)
  1. STELARA [Suspect]
     Active Substance: USTEKINUMAB
     Indication: PSORIASIS
     Route: 058
     Dates: start: 20140113

REACTIONS (5)
  - Off label use [Unknown]
  - Blood pressure abnormal [Unknown]
  - Cerebrovascular accident [Unknown]
  - Incorrect dose administered [Unknown]
  - Depression [Unknown]

NARRATIVE: CASE EVENT DATE: 2018
